FAERS Safety Report 14107272 (Version 3)
Quarter: 2017Q4

REPORT INFORMATION
  Report Type: Report from Study
  Country: US (occurrence: US)
  Receive Date: 20171018
  Receipt Date: 20171117
  Transmission Date: 20180321
  Serious: Yes (Hospitalization, Other)
  Sender: FDA-Public Use
  Company Number: US-ALEXION PHARMACEUTICALS INC.-A201711162

PATIENT
  Sex: Female

DRUGS (1)
  1. SOLIRIS [Suspect]
     Active Substance: ECULIZUMAB
     Indication: PRODUCT USED FOR UNKNOWN INDICATION
     Route: 065

REACTIONS (16)
  - Hepatitis B [Unknown]
  - Device related infection [Recovered/Resolved]
  - Iron overload [Unknown]
  - Mycobacterium tuberculosis complex test positive [Unknown]
  - Blood product transfusion dependent [Unknown]
  - Catheter site haemorrhage [Recovered/Resolved]
  - Pancytopenia [Unknown]
  - Nausea [Unknown]
  - Mucosal inflammation [Unknown]
  - Hypertension [Unknown]
  - Pneumonia fungal [Unknown]
  - Hypokalaemia [Unknown]
  - Oedema peripheral [Unknown]
  - Pain in extremity [Unknown]
  - Bone marrow failure [Unknown]
  - Diabetes mellitus [Unknown]

NARRATIVE: CASE EVENT DATE: 20170911
